FAERS Safety Report 5292432-7 (Version None)
Quarter: 2007Q2

REPORT INFORMATION
  Report Type: 
  Country: None (occurrence: None)
  Receive Date: 20070410
  Receipt Date: 20070330
  Transmission Date: 20071010
  Serious: Yes (Other)
  Sender: FDA-Public Use
  Company Number: US-SHR-US-2007-000158

PATIENT
  Age: 29 Year
  Sex: Female
  Weight: 65 kg

DRUGS (2)
  1. MIRENA [Suspect]
     Indication: CONTRACEPTION
     Dosage: 20 A?G/DAY, CONT
     Route: 015
     Dates: start: 20060626, end: 20061107
  2. M.V.I. [Concomitant]

REACTIONS (2)
  - BACTERIA CERVICAL SPECIMEN IDENTIFIED [None]
  - PELVIC CONGESTION [None]
